FAERS Safety Report 25999991 (Version 1)
Quarter: 2025Q4

REPORT INFORMATION
  Report Type: Report from Study
  Country: EU (occurrence: EU)
  Receive Date: 20251105
  Receipt Date: 20251105
  Transmission Date: 20260117
  Serious: Yes (Hospitalization)
  Sender: RANBAXY
  Company Number: EU-ALMIRALL-DE-2025-3907

PATIENT
  Age: 68 Year
  Sex: Female
  Weight: 65 kg

DRUGS (5)
  1. TILDRAKIZUMAB [Suspect]
     Active Substance: TILDRAKIZUMAB
     Indication: Psoriasis
     Dosage: 100 MILLIGRAM
     Route: 058
     Dates: start: 20210624
  2. DIMETHYL FUMARATE [Concomitant]
     Active Substance: DIMETHYL FUMARATE
     Indication: Psoriasis
     Dosage: 1 MILLIGRAM
     Route: 065
     Dates: start: 20210402, end: 20210531
  3. NEOTIGASON [Concomitant]
     Active Substance: ACITRETIN
     Indication: Psoriasis
     Dosage: 10 MILLIGRAM
     Route: 065
     Dates: start: 20200929, end: 20201027
  4. NEOTIGASON [Concomitant]
     Active Substance: ACITRETIN
     Dosage: 25 MILLIGRAM
     Route: 065
     Dates: start: 202010, end: 20201214
  5. NEOTIGASON [Concomitant]
     Active Substance: ACITRETIN
     Dosage: 30 MILLIGRAM
     Route: 065
     Dates: start: 20210202, end: 20210401

REACTIONS (1)
  - Lung neoplasm malignant [Recovered/Resolved]

NARRATIVE: CASE EVENT DATE: 20230717
